FAERS Safety Report 8198864-1 (Version None)
Quarter: 2012Q1

REPORT INFORMATION
  Report Type: 
  Country: None (occurrence: None)
  Receive Date: 20120309
  Receipt Date: 20120302
  Transmission Date: 20120608
  Serious: Yes (Hospitalization)
  Sender: FDA-Public Use
  Company Number: IT-BRACCO-001674

PATIENT
  Sex: Male

DRUGS (1)
  1. MULTIHANCE [Suspect]
     Dosage: 5010 MG
     Route: 042
     Dates: start: 20120220, end: 20120220

REACTIONS (3)
  - ERYTHEMA [None]
  - CHILLS [None]
  - ABDOMINAL PAIN UPPER [None]
